FAERS Safety Report 5413095-3 (Version None)
Quarter: 2007Q3

REPORT INFORMATION
  Report Type: 
  Country: None (occurrence: None)
  Receive Date: 20070809
  Receipt Date: 20070731
  Transmission Date: 20080115
  Serious: Yes (Death)
  Sender: FDA-Public Use
  Company Number: A-CH2007-17044

PATIENT
  Age: 23 Year
  Sex: Female
  Weight: 48 kg

DRUGS (9)
  1. TRACLEER [Suspect]
     Indication: PULMONARY HYPERTENSION
     Dosage: 125 MG, BID,ORAL; 62.5 MG, BID,ORAL
     Route: 048
     Dates: start: 20040507, end: 20040604
  2. TRACLEER [Suspect]
     Indication: PULMONARY HYPERTENSION
     Dosage: 125 MG, BID,ORAL; 62.5 MG, BID,ORAL
     Route: 048
     Dates: start: 20040605, end: 20070720
  3. ASPEGIC 1000 [Concomitant]
  4. EFFEXOR [Concomitant]
  5. LANOXIN [Concomitant]
  6. ALLOPURINOL [Concomitant]
  7. TEGRETOL [Concomitant]
  8. TRAMADOL HCL [Concomitant]
  9. REMODULIN (TREPROSTINIL) [Concomitant]

REACTIONS (1)
  - HEART AND LUNG TRANSPLANT [None]
